FAERS Safety Report 7831487-X (Version None)
Quarter: 2011Q4

REPORT INFORMATION
  Report Type: 
  Country: None (occurrence: None)
  Receive Date: 20111021
  Receipt Date: 20111021
  Transmission Date: 20120403
  Serious: Yes (Hospitalization)
  Sender: FDA-Public Use
  Company Number: None

PATIENT
  Age: 62 Year
  Weight: 80.1 kg

DRUGS (1)
  1. LENALIDOMIDE [Suspect]
     Indication: CHRONIC LYMPHOCYTIC LEUKAEMIA
     Dosage: 5MG
     Route: 048

REACTIONS (3)
  - MUSCULOSKELETAL CHEST PAIN [None]
  - HERPES ZOSTER [None]
  - PLEURISY VIRAL [None]
